FAERS Safety Report 8836654 (Version 1)
Quarter: 2012Q4

REPORT INFORMATION
  Report Type: Spontaneous
  Country: GR (occurrence: None)
  Receive Date: 20121010
  Receipt Date: 20121010
  Transmission Date: 20130627
  Serious: Yes (Hospitalization, Other)
  Sender: FDA-Public Use
  Company Number: 2012P1060283

PATIENT
  Age: 60 Year
  Sex: Female

DRUGS (2)
  1. CEFUROXIME [Suspect]
     Indication: ARTHROPLASTY NOS
     Route: 042
  2. UNSPECIFIED [Concomitant]

REACTIONS (4)
  - Kounis syndrome [None]
  - Wrong drug administered [None]
  - Arteriospasm coronary [None]
  - Hypersensitivity [None]
